FAERS Safety Report 13617857 (Version 1)
Quarter: 2017Q2

REPORT INFORMATION
  Report Type: Spontaneous
  Country: US (occurrence: US)
  Receive Date: 20170606
  Receipt Date: 20170606
  Transmission Date: 20170830
  Serious: No
  Sender: FDA-Public Use
  Company Number: US-TARO-2016TAR00794

PATIENT
  Age: 19 Month
  Sex: Male

DRUGS (2)
  1. CHILDRENS TYLENOL [Suspect]
     Active Substance: ACETAMINOPHEN
     Indication: PYREXIA
  2. FEVERALL [Suspect]
     Active Substance: ACETAMINOPHEN
     Indication: PYREXIA

REACTIONS (2)
  - Drug effect incomplete [Not Recovered/Not Resolved]
  - Accidental underdose [Recovered/Resolved]

NARRATIVE: CASE EVENT DATE: 20160919
